FAERS Safety Report 11036627 (Version 1)
Quarter: 2015Q2

REPORT INFORMATION
  Report Type: Spontaneous
  Country: FR (occurrence: FR)
  Receive Date: 20150416
  Receipt Date: 20150416
  Transmission Date: 20150821
  Serious: Yes (Hospitalization)
  Sender: FDA-Public Use
  Company Number: FR-AUROBINDO-AUR-APL-2015-03350

PATIENT
  Age: 68 Year
  Sex: Male

DRUGS (1)
  1. METFORMIN ARROW LAB FILM COATED TABLETS 1000MG [Suspect]
     Active Substance: METFORMIN HYDROCHLORIDE
     Indication: DIABETES MELLITUS
     Dosage: 1000 MG, 3 TIMES A DAY
     Route: 048
     Dates: start: 201501

REACTIONS (3)
  - Product substitution issue [None]
  - Hypoglycaemia [Unknown]
  - Syncope [Unknown]

NARRATIVE: CASE EVENT DATE: 201504
